FAERS Safety Report 13242877 (Version 3)
Quarter: 2017Q2

REPORT INFORMATION
  Report Type: Spontaneous
  Country: US (occurrence: US)
  Receive Date: 20170216
  Receipt Date: 20170606
  Transmission Date: 20170830
  Serious: Yes (Death, Other)
  Sender: FDA-Public Use
  Company Number: US-VIFOR (INTERNATIONAL) INC.-VIT-2017-01532

PATIENT
  Age: 72 Year
  Sex: Male
  Weight: 81.72 kg

DRUGS (11)
  1. PLAVIX [Concomitant]
     Active Substance: CLOPIDOGREL BISULFATE
  2. COLECALCIFEROL [Concomitant]
     Active Substance: CHOLECALCIFEROL
  3. ZOFRAN ODT [Concomitant]
     Active Substance: ONDANSETRON HYDROCHLORIDE
  4. PROTONIX [Concomitant]
     Active Substance: PANTOPRAZOLE SODIUM
  5. ACETYLSALICYLIC ACID [Concomitant]
     Active Substance: ASPIRIN
  6. GLYCERYL TRINITRATE [Concomitant]
     Active Substance: NITROGLYCERIN
  7. CARVEDILOL. [Concomitant]
     Active Substance: CARVEDILOL
  8. VELTASSA [Suspect]
     Active Substance: PATIROMER
     Indication: HYPERKALAEMIA
     Route: 048
     Dates: start: 20160309, end: 2017
  9. VELTASSA [Suspect]
     Active Substance: PATIROMER
     Route: 048
     Dates: start: 20160820
  10. ATORVASTATIN CALCIUM. [Concomitant]
     Active Substance: ATORVASTATIN CALCIUM
  11. RENVELA [Concomitant]
     Active Substance: SEVELAMER CARBONATE

REACTIONS (3)
  - Death [Fatal]
  - Prostate cancer [Unknown]
  - Renal cancer [Unknown]

NARRATIVE: CASE EVENT DATE: 2017
